FAERS Safety Report 5283963-4 (Version None)
Quarter: 2007Q2

REPORT INFORMATION
  Report Type: 
  Country: None (occurrence: None)
  Receive Date: 20070402
  Receipt Date: 20070321
  Transmission Date: 20071010
  Serious: Yes (Hospitalization, Other)
  Sender: FDA-Public Use
  Company Number: FR-PFIZER INC-2007005221

PATIENT
  Sex: Female
  Weight: 64 kg

DRUGS (2)
  1. LYRICA [Suspect]
     Indication: NEURALGIA
     Dates: start: 20070109, end: 20070118
  2. EFFERALGAN CODEINE [Concomitant]

REACTIONS (8)
  - COLD SWEAT [None]
  - DEPRESSED MOOD [None]
  - EMOTIONAL DISORDER [None]
  - FACE OEDEMA [None]
  - MOOD SWINGS [None]
  - OEDEMA PERIPHERAL [None]
  - SENSATION OF HEAVINESS [None]
  - WEIGHT INCREASED [None]
